FAERS Safety Report 21695617 (Version 1)
Quarter: 2022Q4

REPORT INFORMATION
  Report Type: Report from Study
  Country: IL (occurrence: IL)
  Receive Date: 20221207
  Receipt Date: 20221207
  Transmission Date: 20230112
  Serious: Yes (Hospitalization)
  Sender: FDA-Public Use
  Company Number: IL-SHIRE-IL201606540

PATIENT
  Age: 37 Year
  Sex: Female

DRUGS (6)
  1. VELAGLUCERASE ALFA [Suspect]
     Active Substance: VELAGLUCERASE ALFA
     Indication: Gaucher^s disease
     Dosage: 15 INTERNATIONAL UNIT/KILOGRAM, Q2WEEKS
     Route: 041
     Dates: start: 20071021
  2. VELAGLUCERASE ALFA [Suspect]
     Active Substance: VELAGLUCERASE ALFA
     Dosage: 30 INTERNATIONAL UNIT/KILOGRAM, Q2WEEKS
     Route: 065
     Dates: start: 20071021, end: 202007
  3. BEZAFIBRATE [Concomitant]
     Active Substance: BEZAFIBRATE
     Indication: Hyperlipidaemia
     Dosage: 400 MILLIGRAM, QD
     Route: 048
     Dates: start: 2016
  4. CEFUROXIME [Concomitant]
     Active Substance: CEFUROXIME
     Indication: Pelvic inflammatory disease
     Dosage: 500 MILLIGRAM, BID
     Route: 048
     Dates: start: 20161003, end: 20161010
  5. FLAGYL [Concomitant]
     Active Substance: METRONIDAZOLE\METRONIDAZOLE HYDROCHLORIDE
     Indication: Pelvic inflammatory disease
     Dosage: 500 MILLIGRAM, TID
     Route: 048
     Dates: start: 20161003, end: 20161010
  6. PAPAVERINE [Concomitant]
     Active Substance: PAPAVERINE
     Indication: Pelvic inflammatory disease
     Dosage: 80 MILLIGRAM, TID
     Route: 048
     Dates: start: 20161003, end: 20161010

REACTIONS (1)
  - Urinary tract infection [Recovered/Resolved]

NARRATIVE: CASE EVENT DATE: 20160101
